FAERS Safety Report 13031029 (Version 1)
Quarter: 2016Q4

REPORT INFORMATION
  Report Type: Spontaneous
  Country: JP (occurrence: JP)
  Receive Date: 20161215
  Receipt Date: 20161215
  Transmission Date: 20170207
  Serious: Yes (Hospitalization)
  Sender: FDA-Public Use
  Company Number: JP-JNJFOC-20161209487

PATIENT
  Age: 38 Year
  Sex: Male
  Weight: 64 kg

DRUGS (31)
  1. PREDONINE [Concomitant]
     Active Substance: PREDNISOLONE\PREDNISOLONE ACETATE\PREDNISOLONE SODIUM SUCCINATE
     Route: 048
  2. PREDONINE [Concomitant]
     Active Substance: PREDNISOLONE\PREDNISOLONE ACETATE\PREDNISOLONE SODIUM SUCCINATE
     Route: 048
  3. PREDONINE [Concomitant]
     Active Substance: PREDNISOLONE\PREDNISOLONE ACETATE\PREDNISOLONE SODIUM SUCCINATE
     Route: 048
  4. PREDONINE [Concomitant]
     Active Substance: PREDNISOLONE\PREDNISOLONE ACETATE\PREDNISOLONE SODIUM SUCCINATE
     Route: 048
  5. TAKEPRON [Concomitant]
     Active Substance: LANSOPRAZOLE
     Route: 048
  6. REMICADE [Suspect]
     Active Substance: INFLIXIMAB
     Indication: PRODUCT USED FOR UNKNOWN INDICATION
     Route: 042
     Dates: start: 20160329, end: 20160329
  7. YERVOY [Suspect]
     Active Substance: IPILIMUMAB
     Indication: MALIGNANT MELANOMA
     Route: 042
     Dates: start: 20160113, end: 20160113
  8. OPDIVO [Concomitant]
     Active Substance: NIVOLUMAB
     Route: 065
     Dates: start: 20161003, end: 20161003
  9. PREDONINE [Concomitant]
     Active Substance: PREDNISOLONE\PREDNISOLONE ACETATE\PREDNISOLONE SODIUM SUCCINATE
     Route: 042
     Dates: start: 20160328
  10. REMICADE [Suspect]
     Active Substance: INFLIXIMAB
     Indication: PRODUCT USED FOR UNKNOWN INDICATION
     Route: 042
     Dates: start: 20160413, end: 20160413
  11. CEFCAPENE PIVOXIL HCL [Concomitant]
     Active Substance: CEFCAPENE PIVOXIL HYDROCHLORIDE
     Indication: INFECTION PROPHYLAXIS
     Route: 065
     Dates: start: 20160201, end: 20160203
  12. PL [Concomitant]
     Active Substance: ACETAMINOPHEN\CAFFEINE\PROMETHAZINE\SALICYLAMIDE
     Indication: COUGH
     Route: 048
     Dates: start: 20160203, end: 20160209
  13. OPDIVO [Concomitant]
     Active Substance: NIVOLUMAB
     Route: 065
     Dates: start: 20161019, end: 20161019
  14. HYALEIN [Concomitant]
     Active Substance: HYALURONATE SODIUM
     Route: 031
  15. YERVOY [Suspect]
     Active Substance: IPILIMUMAB
     Indication: MALIGNANT MELANOMA
     Route: 042
     Dates: start: 20160302, end: 20160302
  16. FAMOTIDINE. [Suspect]
     Active Substance: FAMOTIDINE
     Indication: MALIGNANT MELANOMA
     Route: 065
  17. OPDIVO [Concomitant]
     Active Substance: NIVOLUMAB
     Route: 065
     Dates: start: 20160608, end: 20160608
  18. OPDIVO [Concomitant]
     Active Substance: NIVOLUMAB
     Route: 065
     Dates: start: 20160518, end: 20160518
  19. DACARBAZINE. [Concomitant]
     Active Substance: DACARBAZINE
     Route: 065
     Dates: start: 20160727, end: 20160727
  20. PREDONINE [Concomitant]
     Active Substance: PREDNISOLONE\PREDNISOLONE ACETATE\PREDNISOLONE SODIUM SUCCINATE
     Route: 048
  21. OPDIVO [Concomitant]
     Active Substance: NIVOLUMAB
     Route: 065
     Dates: start: 20161116, end: 20161116
  22. PREDONINE [Concomitant]
     Active Substance: PREDNISOLONE\PREDNISOLONE ACETATE\PREDNISOLONE SODIUM SUCCINATE
     Route: 042
     Dates: start: 20160407
  23. OPDIVO [Concomitant]
     Active Substance: NIVOLUMAB
     Route: 065
     Dates: start: 20160629, end: 20160629
  24. PREDONINE [Concomitant]
     Active Substance: PREDNISOLONE\PREDNISOLONE ACETATE\PREDNISOLONE SODIUM SUCCINATE
     Route: 048
  25. OPDIVO [Concomitant]
     Active Substance: NIVOLUMAB
     Route: 065
     Dates: start: 20161102, end: 20161102
  26. FLUMETHOLON [Concomitant]
     Active Substance: FLUOROMETHOLONE
     Route: 031
  27. SANCOBA [Concomitant]
     Active Substance: CYANOCOBALAMIN
     Route: 031
  28. PREDONINE [Concomitant]
     Active Substance: PREDNISOLONE\PREDNISOLONE ACETATE\PREDNISOLONE SODIUM SUCCINATE
     Route: 048
     Dates: start: 20160217
  29. BETAMETHASONE SODIUM PHOSPHATE [Concomitant]
     Active Substance: BETAMETHASONE SODIUM PHOSPHATE
     Indication: ECZEMA
     Route: 061
     Dates: start: 20160203, end: 20160203
  30. DACARBAZINE. [Concomitant]
     Active Substance: DACARBAZINE
     Route: 065
     Dates: start: 20160824, end: 20160824
  31. BAKTAR [Concomitant]
     Active Substance: SULFAMETHOXAZOLE\TRIMETHOPRIM
     Route: 048

REACTIONS (6)
  - Platelet count decreased [Recovering/Resolving]
  - Pyrexia [Recovering/Resolving]
  - Diarrhoea [Recovered/Resolved]
  - Skin disorder [Recovering/Resolving]
  - Hepatic function abnormal [Recovered/Resolved]
  - Colitis [Recovered/Resolved]

NARRATIVE: CASE EVENT DATE: 2016
